FAERS Safety Report 4641048-1 (Version None)
Quarter: 2005Q2

REPORT INFORMATION
  Report Type: 
  Country: None (occurrence: None)
  Receive Date: 20050421
  Receipt Date: 20050408
  Transmission Date: 20051028
  Serious: Yes (Hospitalization, Other)
  Sender: FDA-Public Use
  Company Number: GB-JNJFOC-20050402430

PATIENT
  Sex: Female
  Weight: 53 kg

DRUGS (8)
  1. REMICADE [Suspect]
     Indication: RHEUMATOID ARTHRITIS
     Route: 042
  2. METHOTREXATE [Concomitant]
  3. FOLIC ACID [Concomitant]
  4. MAXOLON [Concomitant]
  5. DOTHIEPIN HYDROCHLORIDE [Concomitant]
  6. CO-PROXAMOL [Concomitant]
  7. CO-PROXAMOL [Concomitant]
  8. ISTIN [Concomitant]

REACTIONS (1)
  - JOINT DISLOCATION [None]
